FAERS Safety Report 18573581 (Version 2)
Quarter: 2020Q4

REPORT INFORMATION
  Report Type: Spontaneous
  Country: AT (occurrence: AT)
  Receive Date: 20201203
  Receipt Date: 20201214
  Transmission Date: 20210114
  Serious: Yes (Hospitalization)
  Sender: FDA-Public Use
  Company Number: NVSC2020AT248992

PATIENT
  Age: 48 Year
  Sex: Male

DRUGS (9)
  1. CONCOR [Suspect]
     Active Substance: BISOPROLOL FUMARATE
     Indication: HEART RATE INCREASED
     Dosage: 5 MG
     Route: 065
  2. IVABRADINE [Suspect]
     Active Substance: IVABRADINE
     Indication: BLOOD PRESSURE INCREASED
     Dosage: 10 MG, QD (1/0/1/0)
     Route: 065
     Dates: start: 20200620, end: 20200731
  3. BISOPROLOL [Suspect]
     Active Substance: BISOPROLOL
     Indication: HEART RATE INCREASED
     Dosage: UNK
     Route: 065
  4. RIVACOR [Suspect]
     Active Substance: BISOPROLOL FUMARATE
     Indication: BLOOD PRESSURE INCREASED
     Dosage: UNK
     Route: 065
  5. EFECTIN [Suspect]
     Active Substance: VENLAFAXINE HYDROCHLORIDE
     Indication: ANXIETY DISORDER
     Dosage: 150 MG, QD (1/0/0/0)
     Route: 065
     Dates: end: 202008
  6. MIRTEL [MIRTAZAPINE] [Suspect]
     Active Substance: MIRTAZAPINE
     Indication: ANXIETY DISORDER
     Dosage: 30 MG, QD (0/0/0/1)
     Route: 065
     Dates: end: 202006
  7. BISOPROLOL [Suspect]
     Active Substance: BISOPROLOL
     Indication: BLOOD PRESSURE INCREASED
  8. CONCOR [Suspect]
     Active Substance: BISOPROLOL FUMARATE
     Indication: BLOOD PRESSURE INCREASED
     Dosage: 10 MG, Q12H (1/0/1/0) (DATE OF LAST ADMINISTRATION WAS 19 JUN 2020)
     Route: 065
     Dates: start: 20200619
  9. LYRICA [Suspect]
     Active Substance: PREGABALIN
     Indication: ANXIETY DISORDER
     Dosage: 225 MG (0.33 DAY, 1/1/1/0)
     Route: 065
     Dates: end: 202008

REACTIONS (10)
  - Drug eruption [Recovering/Resolving]
  - Skin exfoliation [Recovering/Resolving]
  - Weight increased [Unknown]
  - Blister [Recovering/Resolving]
  - Psoriasis [Recovering/Resolving]
  - Rash [Recovering/Resolving]
  - Skin disorder [Recovering/Resolving]
  - Food craving [Unknown]
  - Dermatitis [Recovering/Resolving]
  - Eczema [Recovering/Resolving]

NARRATIVE: CASE EVENT DATE: 2020
